FAERS Safety Report 4338321-3 (Version None)
Quarter: 2004Q2

REPORT INFORMATION
  Report Type: 
  Country: None (occurrence: None)
  Receive Date: 20040407
  Receipt Date: 20040326
  Transmission Date: 20050107
  Serious: Yes (Death)
  Sender: FDA-Public Use
  Company Number: 2004206664NO

PATIENT
  Age: 90 Year
  Sex: Female

DRUGS (1)
  1. CELEBRA(CELECOXIB)CAPSULE [Suspect]
     Indication: OSTEOARTHRITIS
     Dosage: 200 MG, QD, ORAL
     Route: 048
     Dates: start: 20020101, end: 20020101

REACTIONS (3)
  - HAEMATEMESIS [None]
  - HAEMORRHAGE [None]
  - MELAENA [None]
